FAERS Safety Report 24561206 (Version 3)
Quarter: 2024Q4

REPORT INFORMATION
  Report Type: Spontaneous
  Country: US (occurrence: US)
  Receive Date: 20241029
  Receipt Date: 20241206
  Transmission Date: 20250115
  Serious: Yes (Other)
  Sender: OPKO HEALTH
  Company Number: US-OPKO PHARMACEUTICALS, LLC.-2024OPK00274

PATIENT
  Age: 62 Year
  Sex: Female
  Weight: 59.41 kg

DRUGS (22)
  1. RAYALDEE [Suspect]
     Active Substance: CALCIFEDIOL
     Indication: Chronic kidney disease
     Dosage: 30 MCG, QD
     Route: 048
     Dates: start: 20240726
  2. RAYALDEE [Suspect]
     Active Substance: CALCIFEDIOL
     Indication: Vitamin D deficiency
  3. RAYALDEE [Suspect]
     Active Substance: CALCIFEDIOL
     Indication: Hyperparathyroidism secondary
  4. METOPROLOL SUCCINATE [Concomitant]
     Active Substance: METOPROLOL SUCCINATE
     Dosage: UNK, QD
     Route: 048
  5. BUMETANIDE [Concomitant]
     Active Substance: BUMETANIDE
     Dosage: UNK, BID
     Route: 048
  6. SODIUM ZIRCONIUM CYCLOSILICATE [Concomitant]
     Active Substance: SODIUM ZIRCONIUM CYCLOSILICATE
     Dosage: 15 GRAM, QD
     Route: 048
  7. PREDNISONE [Concomitant]
     Active Substance: PREDNISONE
     Indication: Arthralgia
     Dosage: UNK, PRN
     Route: 048
  8. EMPAGLIFLOZIN [Concomitant]
     Active Substance: EMPAGLIFLOZIN
     Dosage: UNK, QOD
     Route: 048
  9. CARVEDILOL [Concomitant]
     Active Substance: CARVEDILOL
     Dosage: UNK, BID
     Route: 048
  10. SCOPOLAMINE [Concomitant]
     Active Substance: SCOPOLAMINE
     Dosage: UNK
  11. CLONIDINE [Concomitant]
     Active Substance: CLONIDINE
     Dosage: UNK, WEEKLY
  12. ZINC GLUCONATE [Concomitant]
     Active Substance: ZINC GLUCONATE
     Dosage: UNK
  13. VITAMIN C [Concomitant]
     Active Substance: ASCORBIC ACID
     Dosage: UNK
  14. TAMOXIFEN [Concomitant]
     Active Substance: TAMOXIFEN
     Dosage: UNK
  15. SYNTHROID [Concomitant]
     Active Substance: LEVOTHYROXINE SODIUM
     Dosage: UNK
  16. CREON [Concomitant]
     Active Substance: PANCRELIPASE AMYLASE\PANCRELIPASE LIPASE\PANCRELIPASE PROTEASE
     Dosage: UNK
  17. LINACLOTIDE [Concomitant]
     Active Substance: LINACLOTIDE
     Dosage: UNK
  18. FERROUS SULFATE [Concomitant]
     Active Substance: FERROUS SULFATE
     Dosage: UNK
  19. CHOLECALCIFEROL [Concomitant]
     Active Substance: CHOLECALCIFEROL
     Dosage: UNK
  20. CALCIUM GLUCARATE [Concomitant]
     Dosage: UNK
  21. ALLOPURINOL [Concomitant]
     Active Substance: ALLOPURINOL
     Dosage: UNK
  22. ACETAMINOPHEN [Concomitant]
     Active Substance: ACETAMINOPHEN
     Dosage: UNK

REACTIONS (2)
  - Dialysis [Recovered/Resolved]
  - Acute kidney injury [Recovered/Resolved]

NARRATIVE: CASE EVENT DATE: 20240810
